FAERS Safety Report 6970636-2 (Version None)
Quarter: 2010Q3

REPORT INFORMATION
  Report Type: 
  Country: None (occurrence: None)
  Receive Date: 20100908
  Receipt Date: 20100903
  Transmission Date: 20110219
  Serious: Yes (Life-Threatening, Hospitalization, Disabling, Other)
  Sender: FDA-Public Use
  Company Number: US-CEPHALON-2010004312

PATIENT
  Sex: Male
  Weight: 72 kg

DRUGS (10)
  1. TRISENOX [Suspect]
     Indication: ACUTE PROMYELOCYTIC LEUKAEMIA
     Route: 041
     Dates: start: 20100101
  2. TRISENOX [Suspect]
     Route: 041
     Dates: start: 20100712, end: 20100813
  3. KEPPRA [Concomitant]
     Indication: PROPHYLAXIS
  4. VALACYCLOVIR HYDROCHLORIDE [Concomitant]
  5. ALUMINUM HYDROXIDE [Concomitant]
  6. ONDANSETRON HCL [Concomitant]
  7. ATARAX [Concomitant]
  8. MAALOX [Concomitant]
  9. PRILOSEC [Concomitant]
  10. SENOKOT [Concomitant]

REACTIONS (10)
  - APHASIA [None]
  - CONVULSION [None]
  - DISSEMINATED INTRAVASCULAR COAGULATION [None]
  - ECZEMA [None]
  - HAEMORRHAGE INTRACRANIAL [None]
  - RASH MACULO-PAPULAR [None]
  - SKIN EXFOLIATION [None]
  - TREMOR [None]
  - VISION BLURRED [None]
  - WOUND INFECTION STAPHYLOCOCCAL [None]
